FAERS Safety Report 10242248 (Version 1)
Quarter: 2014Q1

REPORT INFORMATION
  Report Type: Spontaneous
  Country: US (occurrence: None)
  Receive Date: 20140306
  Receipt Date: 20140306
  Transmission Date: 20141002
  Serious: Yes (Other)
  Sender: FDA-Public Use
  Company Number: 163-21880-13061748

PATIENT
  Age: 73 Year
  Sex: Female
  Weight: 88.91 kg

DRUGS (4)
  1. REVLIMID (LENALIDOMIDE) (10 MILLIGRAM, CAPSULES) [Suspect]
     Indication: MYELODYSPLASTIC SYNDROME
     Dosage: 1 IN 1 D
     Route: 048
     Dates: start: 20130117
  2. ASPIRINE (ACETYLSALICYLIC ACID) [Concomitant]
  3. IBUPROFEN (IBUPROFEN) [Concomitant]
  4. VITAMIN D3 (COLECALCIFEROL) [Concomitant]

REACTIONS (2)
  - Faeces discoloured [None]
  - Diarrhoea [None]
